FAERS Safety Report 12136424 (Version 1)
Quarter: 2016Q1

REPORT INFORMATION
  Report Type: Spontaneous
  Country: US (occurrence: US)
  Receive Date: 20160302
  Receipt Date: 20160302
  Transmission Date: 20160526
  Serious: No
  Sender: FDA-Public Use
  Company Number: US-PFIZER INC-2016090152

PATIENT
  Age: 64 Year
  Sex: Female
  Weight: 102 kg

DRUGS (5)
  1. LYRICA [Suspect]
     Active Substance: PREGABALIN
     Indication: FIBROMYALGIA
     Dosage: 75 MG, 2X/DAY
  2. NABUMETONE. [Concomitant]
     Active Substance: NABUMETONE
     Indication: OSTEOARTHRITIS
     Dosage: 500 MG, 1X/DAY, IN THE EVENING
  3. CYCLOBENZAPRINE [Concomitant]
     Active Substance: CYCLOBENZAPRINE
     Dosage: 5 MG, 1X/DAY, AT BED TIME
  4. LYRICA [Suspect]
     Active Substance: PREGABALIN
     Indication: NEURALGIA
  5. NABUMETONE. [Concomitant]
     Active Substance: NABUMETONE
     Indication: SLEEP DISORDER

REACTIONS (2)
  - Drug effect incomplete [Unknown]
  - Bone density decreased [Unknown]
